FAERS Safety Report 7905277-3 (Version None)
Quarter: 2011Q4

REPORT INFORMATION
  Report Type: 
  Country: None (occurrence: None)
  Receive Date: 20111109
  Receipt Date: 20110818
  Transmission Date: 20120403
  Serious: No
  Sender: FDA-Public Use
  Company Number: US-BAYER-2011-078910

PATIENT
  Age: 20 Year
  Sex: Female
  Weight: 54 kg

DRUGS (1)
  1. MIDOL LIQUID GELS [Suspect]
     Indication: DYSMENORRHOEA
     Dosage: 4 DF, QD
     Route: 048
     Dates: start: 20110817, end: 20110817

REACTIONS (4)
  - DYSMENORRHOEA [None]
  - OVERDOSE [None]
  - ABDOMINAL PAIN [None]
  - BACK PAIN [None]
